FAERS Safety Report 10206391 (Version 1)
Quarter: 2014Q2

REPORT INFORMATION
  Report Type: Spontaneous
  Country: FR (occurrence: FR)
  Receive Date: 20140530
  Receipt Date: 20140530
  Transmission Date: 20141212
  Serious: Yes (Life-Threatening, Hospitalization)
  Sender: FDA-Public Use
  Company Number: FR-ELI_LILLY_AND_COMPANY-FR201405008532

PATIENT
  Age: 64 Year
  Sex: Male

DRUGS (10)
  1. GEMZAR [Suspect]
     Indication: MALIGNANT NEOPLASM PROGRESSION
     Dosage: 2000 MG, UNK
     Route: 042
     Dates: start: 20140326, end: 20140409
  2. PARACETAMOL [Concomitant]
  3. KARDEGIC [Concomitant]
  4. EUPRESSYL                          /00631801/ [Concomitant]
  5. ORACILLINE                         /00001801/ [Concomitant]
  6. BARACLUDE [Concomitant]
  7. ALTEISDUO [Concomitant]
  8. TAHOR [Concomitant]
  9. VESICARE [Concomitant]
  10. COMBODART [Concomitant]

REACTIONS (3)
  - Interstitial lung disease [Recovering/Resolving]
  - Renal failure acute [Unknown]
  - Pleural effusion [Recovering/Resolving]
